FAERS Safety Report 15584618 (Version 1)
Quarter: 2018Q4

REPORT INFORMATION
  Report Type: Spontaneous
  Country: JP (occurrence: JP)
  Receive Date: 20181102
  Receipt Date: 20181102
  Transmission Date: 20190205
  Serious: Yes (Death, Other)
  Sender: FDA-Public Use
  Company Number: JP-CELGENEUS-JPN-20180907366

PATIENT
  Age: 73 Year
  Sex: Male

DRUGS (1)
  1. ISTODAX [Suspect]
     Active Substance: ROMIDEPSIN
     Indication: ANGIOIMMUNOBLASTIC T-CELL LYMPHOMA
     Dosage: UNKNOWN
     Route: 041
     Dates: start: 20180904, end: 201810

REACTIONS (3)
  - Pyrexia [Recovered/Resolved]
  - Angioimmunoblastic T-cell lymphoma [Fatal]
  - Constipation [Recovering/Resolving]

NARRATIVE: CASE EVENT DATE: 20180905
